FAERS Safety Report 15717235 (Version 1)
Quarter: 2018Q4

REPORT INFORMATION
  Report Type: Spontaneous
  Country: US (occurrence: US)
  Receive Date: 20181213
  Receipt Date: 20181213
  Transmission Date: 20190205
  Serious: Yes (Other)
  Sender: FDA-Public Use
  Company Number: PHEH2018US052616

PATIENT
  Sex: Male

DRUGS (1)
  1. TASIGNA [Suspect]
     Active Substance: NILOTINIB
     Indication: CHRONIC MYELOID LEUKAEMIA
     Dosage: UNK
     Route: 065
     Dates: start: 20150313, end: 20170204

REACTIONS (6)
  - Acute coronary syndrome [Unknown]
  - Coronary artery disease [Unknown]
  - Cardiovascular disorder [Unknown]
  - Cardiac failure congestive [Unknown]
  - Arteriosclerosis [Unknown]
  - Myocardial infarction [Unknown]
